FAERS Safety Report 10204484 (Version 1)
Quarter: 2014Q2

REPORT INFORMATION
  Report Type: Spontaneous
  Country: US (occurrence: US)
  Receive Date: 20140529
  Receipt Date: 20140529
  Transmission Date: 20141212
  Serious: Yes (Other)
  Sender: FDA-Public Use
  Company Number: US-ACTAVIS-2014-11538

PATIENT
  Age: 65 Year
  Sex: Male

DRUGS (1)
  1. VALPROIC ACID (UNKNOWN) [Suspect]
     Indication: CONVULSION
     Dosage: 1250 MG, DAILY
     Route: 065

REACTIONS (1)
  - Parkinsonism [Recovered/Resolved]
